FAERS Safety Report 10698167 (Version 1)
Quarter: 2015Q1

REPORT INFORMATION
  Report Type: Spontaneous
  Country: US (occurrence: None)
  Receive Date: 20150107
  Receipt Date: 20150107
  Transmission Date: 20150721
  Serious: No
  Sender: FDA-Public Use
  Company Number: None

PATIENT
  Sex: Female

DRUGS (1)
  1. STELARA [Suspect]
     Active Substance: USTEKINUMAB
     Indication: PSORIASIS
     Dosage: DATE OF USE: 5 MONTHS, 90 MG, Q 3 MONTHS, SUBCUTANEOUS
     Route: 058

REACTIONS (1)
  - Hypersensitivity [None]
